FAERS Safety Report 12906554 (Version 2)
Quarter: 2017Q4

REPORT INFORMATION
  Report Type: Spontaneous
  Country: US (occurrence: US)
  Receive Date: 20161103
  Receipt Date: 20171027
  Transmission Date: 20180320
  Serious: Yes (Other)
  Sender: FDA-Public Use
  Company Number: US-WEST-WARD PHARMACEUTICALS CORP.-US-H14001-16-02308

PATIENT
  Age: 10 Year
  Sex: Male

DRUGS (9)
  1. CYCLOPHOSPHAMIDE. [Suspect]
     Active Substance: CYCLOPHOSPHAMIDE
     Indication: UNDIFFERENTIATED SARCOMA
     Route: 065
     Dates: start: 20160420, end: 2016
  2. TOPOTECAN [Suspect]
     Active Substance: TOPOTECAN HYDROCHLORIDE
     Indication: UNDIFFERENTIATED SARCOMA
     Route: 065
     Dates: start: 20160420, end: 2016
  3. MORPHINE [Concomitant]
     Active Substance: MORPHINE
     Route: 065
  4. CRIZOTINIB [Suspect]
     Active Substance: CRIZOTINIB
     Indication: UNDIFFERENTIATED SARCOMA
     Route: 065
     Dates: start: 20160420, end: 2016
  5. QUILLIVANT XR [Concomitant]
     Active Substance: METHYLPHENIDATE HYDROCHLORIDE
     Indication: ATTENTION DEFICIT/HYPERACTIVITY DISORDER
     Route: 065
  6. HYDROXYZINE [Concomitant]
     Active Substance: HYDROXYZINE HYDROCHLORIDE
     Indication: SEASONAL ALLERGY
     Route: 065
  7. PENTAMIDINE [Concomitant]
     Active Substance: PENTAMIDINE
     Indication: ANTIFUNGAL PROPHYLAXIS
     Route: 065
     Dates: end: 20160909
  8. MORPHINE [Concomitant]
     Active Substance: MORPHINE
     Indication: PAIN
     Route: 065
  9. ANTIEMETICS [Concomitant]
     Active Substance: UNSPECIFIED INGREDIENT
     Indication: PROPHYLAXIS OF NAUSEA AND VOMITING
     Route: 065

REACTIONS (20)
  - Skin candida [Unknown]
  - Immunodeficiency [Unknown]
  - Sleep apnoea syndrome [Unknown]
  - Platelet count decreased [Recovering/Resolving]
  - Aspiration [Not Recovered/Not Resolved]
  - Condition aggravated [Not Recovered/Not Resolved]
  - Hypoxia [Unknown]
  - Erythema [Unknown]
  - Decreased appetite [Unknown]
  - Anal incontinence [Recovered/Resolved]
  - Catheter site pruritus [Unknown]
  - Neutropenia [Not Recovered/Not Resolved]
  - Oral pain [Recovered/Resolved]
  - Diaphragmatic disorder [Unknown]
  - Selective eating disorder [Unknown]
  - Ear pain [Unknown]
  - Sepsis [Unknown]
  - Obstructive airways disorder [Unknown]
  - Mucosal inflammation [Not Recovered/Not Resolved]
  - Skin toxicity [Recovered/Resolved]

NARRATIVE: CASE EVENT DATE: 2016
